FAERS Safety Report 5883512-3 (Version None)
Quarter: 2008Q3

REPORT INFORMATION
  Report Type: 
  Country: None (occurrence: None)
  Receive Date: 20080915
  Receipt Date: 20080904
  Transmission Date: 20090109
  Serious: Yes (Hospitalization, Other)
  Sender: FDA-Public Use
  Company Number: PHHY2008JP12884

PATIENT
  Sex: Male

DRUGS (7)
  1. NEORAL [Suspect]
     Indication: NEPHROTIC SYNDROME
     Dosage: 0.9 ML
     Route: 048
     Dates: end: 20070501
  2. NEORAL [Suspect]
     Dosage: 0.45 ML, BID
     Route: 048
     Dates: start: 20070828
  3. PREDNISOLONE [Suspect]
     Indication: NEPHROTIC SYNDROME
     Dosage: 30 MG/DAY
     Route: 048
  4. BREDININ [Suspect]
     Indication: NEPHROTIC SYNDROME
     Dosage: 250 MG/DAY
     Route: 048
  5. STEROIDS NOS [Suspect]
  6. RENIVACE [Concomitant]
     Indication: RENAL HYPERTENSION
     Dosage: 5 MG
     Route: 048
  7. ALFAROL [Concomitant]
     Indication: OSTEOPOROSIS
     Dosage: 0.25 MG
     Route: 048

REACTIONS (22)
  - BLOOD BETA-D-GLUCAN INCREASED [None]
  - BLOOD FIBRINOGEN INCREASED [None]
  - C-REACTIVE PROTEIN INCREASED [None]
  - CARDIAC MURMUR [None]
  - FOCAL GLOMERULOSCLEROSIS [None]
  - HYPERCOAGULATION [None]
  - HYPERLIPIDAEMIA [None]
  - HYPOPROTEINAEMIA [None]
  - INTRACARDIAC MASS [None]
  - INTRACARDIAC THROMBUS [None]
  - NEPHROTIC SYNDROME [None]
  - OEDEMA [None]
  - PHARYNGEAL ERYTHEMA [None]
  - PNEUMONIA [None]
  - PNEUMONIA BACTERIAL [None]
  - PNEUMONIA FUNGAL [None]
  - PYREXIA [None]
  - RALES [None]
  - THORACOTOMY [None]
  - UPPER RESPIRATORY TRACT INFECTION [None]
  - UPPER RESPIRATORY TRACT INFLAMMATION [None]
  - WHITE BLOOD CELL COUNT INCREASED [None]
